FAERS Safety Report 16361549 (Version 4)
Quarter: 2019Q4

REPORT INFORMATION
  Report Type: Spontaneous
  Country: US (occurrence: US)
  Receive Date: 20190528
  Receipt Date: 20191210
  Transmission Date: 20200122
  Serious: No
  Sender: FDA-Public Use
  Company Number: US-PFIZER INC-2019216426

PATIENT
  Age: 70 Year
  Sex: Female
  Weight: 81.65 kg

DRUGS (4)
  1. NALBUPHINE HYDROCHLORIDE. [Suspect]
     Active Substance: NALBUPHINE HYDROCHLORIDE
     Dosage: 10 MG/ML, UNK
  2. NALBUPHINE HYDROCHLORIDE. [Suspect]
     Active Substance: NALBUPHINE HYDROCHLORIDE
     Dosage: 2 ML EVERY 4 HRS AS NEEDED
     Route: 030
     Dates: start: 1999
  3. NALBUPHINE HYDROCHLORIDE. [Suspect]
     Active Substance: NALBUPHINE HYDROCHLORIDE
     Indication: NEURALGIA
     Dosage: UNK
     Dates: start: 1995
  4. NALBUPHINE HYDROCHLORIDE. [Suspect]
     Active Substance: NALBUPHINE HYDROCHLORIDE
     Dosage: 20 MG, (1ML 4-6 TIMES PER DAY)

REACTIONS (5)
  - Off label use [Not Recovered/Not Resolved]
  - Product administration error [Unknown]
  - Arthritis [Unknown]
  - Product storage error [Unknown]
  - Drug ineffective for unapproved indication [Not Recovered/Not Resolved]

NARRATIVE: CASE EVENT DATE: 201906
